FAERS Safety Report 4806031-1 (Version None)
Quarter: 2005Q4

REPORT INFORMATION
  Report Type: 
  Country: None (occurrence: None)
  Receive Date: 20051019
  Receipt Date: 20051005
  Transmission Date: 20060501
  Serious: Yes (Hospitalization)
  Sender: FDA-Public Use
  Company Number: USA0510110049

PATIENT
  Age: 64 Year
  Sex: Female

DRUGS (1)
  1. HUMALOG [Suspect]
     Indication: DIABETES MELLITUS
     Dates: start: 19980101

REACTIONS (4)
  - CATARACT [None]
  - CONTUSION [None]
  - HERNIA REPAIR [None]
  - VISUAL ACUITY REDUCED [None]
